FAERS Safety Report 8470961-2 (Version None)
Quarter: 2012Q2

REPORT INFORMATION
  Report Type: 
  Country: None (occurrence: None)
  Receive Date: 20120627
  Receipt Date: 20120618
  Transmission Date: 20120825
  Serious: Yes (Other)
  Sender: FDA-Public Use
  Company Number: CA-JNJFOC-20120609444

PATIENT
  Sex: Female
  Weight: 73 kg

DRUGS (3)
  1. REMICADE [Suspect]
     Indication: CROHN'S DISEASE
     Dosage: FREQUENCY: 0-2-6 EVERY 8 WEEKS FOR 52 WEEKS
     Route: 042
  2. ACETAMINOPHEN [Concomitant]
     Indication: PREMEDICATION
     Route: 048
     Dates: start: 20120618
  3. REMICADE [Suspect]
     Dosage: 5TH INFUSION
     Route: 042
     Dates: start: 20120618

REACTIONS (4)
  - BLOOD PRESSURE DECREASED [None]
  - DIARRHOEA [None]
  - PSORIASIS [None]
  - INFUSION RELATED REACTION [None]
